FAERS Safety Report 14694246 (Version 8)
Quarter: 2019Q4

REPORT INFORMATION
  Report Type: Spontaneous
  Country: US (occurrence: US)
  Receive Date: 20180329
  Receipt Date: 20191031
  Transmission Date: 20200122
  Serious: Yes (Hospitalization, Other)
  Sender: FDA-Public Use
  Company Number: US-PFIZER INC-2018130273

PATIENT
  Age: 76 Year
  Sex: Female
  Weight: 47 kg

DRUGS (50)
  1. LYRICA [Suspect]
     Active Substance: PREGABALIN
     Indication: ARTHRITIS
     Dosage: 225 MG, 1X/DAY
     Route: 048
  2. LOVASTATIN. [Concomitant]
     Active Substance: LOVASTATIN
     Dosage: 40 MG, 1X/DAY
  3. DICLOFEN [DICLOFENAC SODIUM] [Concomitant]
     Indication: MUSCLE RELAXANT THERAPY
     Dosage: 10 MG, 4X/DAY
     Route: 048
     Dates: start: 2017
  4. CARVEDILOL. [Concomitant]
     Active Substance: CARVEDILOL
     Indication: BLOOD PRESSURE ABNORMAL
     Dosage: 6.5 MG, 2X/DAY
  5. CARVEDILOL. [Concomitant]
     Active Substance: CARVEDILOL
     Indication: HEART RATE DECREASED
  6. DOCQLACE [Concomitant]
     Active Substance: DOCUSATE SODIUM
     Indication: CONSTIPATION
     Dosage: 100 MG, UNK
  7. EFFEXOR XR [Concomitant]
     Active Substance: VENLAFAXINE HYDROCHLORIDE
     Indication: DEPRESSION
     Dosage: 150 MG, 1X/DAY
  8. HYDROCODONE/ACETAMINOPHEN [Concomitant]
     Active Substance: ACETAMINOPHEN\HYDROCODONE
     Indication: SOMNOLENCE
     Dosage: UNK, AS NEEDED (7.5 MG /325MG, 1 TWICE/DAY AS NEEDED)
  9. SONATA [ZALEPLON] [Concomitant]
     Indication: SLEEP DISORDER
     Dosage: 5 MG, 1X/DAY
  10. BACLOFEN. [Concomitant]
     Active Substance: BACLOFEN
     Indication: MUSCLE DISORDER
     Dosage: 10 MG, 4X/DAY (10MG FOUR TIMES A DAY)
  11. AMIODARONE [Concomitant]
     Active Substance: AMIODARONE
     Indication: NAUSEA
  12. CHANTIX [Concomitant]
     Active Substance: VARENICLINE TARTRATE
     Dosage: 1 MG, 2X/DAY
  13. CIPROFLOXACIN. [Concomitant]
     Active Substance: CIPROFLOXACIN
     Dosage: 250 MG, UNK
  14. SONATA [ZALEPLON] [Concomitant]
     Indication: DIZZINESS
  15. ADVAIR HFA [Concomitant]
     Active Substance: FLUTICASONE PROPIONATE\SALMETEROL XINAFOATE
     Dosage: 1 DF, 2X/DAY
  16. LOVASTATIN. [Concomitant]
     Active Substance: LOVASTATIN
     Dosage: UNK
     Route: 065
     Dates: start: 2005
  17. CLONIDINE HCL [Concomitant]
     Active Substance: CLONIDINE HYDROCHLORIDE
     Indication: BLOOD PRESSURE MEASUREMENT
     Dosage: 0.1 MG, 1X/DAY
  18. LEVOFLOXACIN. [Concomitant]
     Active Substance: LEVOFLOXACIN
     Indication: BACTERIAL INFECTION
     Dosage: 500 MG, UNK
  19. TRAZODONE [Concomitant]
     Active Substance: TRAZODONE HYDROCHLORIDE
     Dosage: 100 MG, 1X/DAY
     Dates: start: 2005
  20. XARELTO [Concomitant]
     Active Substance: RIVAROXABAN
     Indication: THROMBOSIS
     Dosage: 10 MG, UNK
  21. APIXABAN [Suspect]
     Active Substance: APIXABAN
     Dosage: 2.5 MG, 2X/DAY (2.5 MILLIGRAM, BID)
  22. LOVASTATIN. [Concomitant]
     Active Substance: LOVASTATIN
     Indication: BLOOD CHOLESTEROL
     Dosage: 40 MG, DAILY
  23. AMIODARONE [Concomitant]
     Active Substance: AMIODARONE
     Indication: IRREGULAR BREATHING
     Dosage: 200 MG, 2X/DAY
  24. LYRICA [Suspect]
     Active Substance: PREGABALIN
     Indication: PAIN
  25. ROSUVASTATIN. [Concomitant]
     Active Substance: ROSUVASTATIN
     Indication: BLOOD CHOLESTEROL
     Dosage: 40 MG, DAILY
     Route: 048
  26. CIPROFLOXACIN. [Concomitant]
     Active Substance: CIPROFLOXACIN
     Indication: BACTERIAL INFECTION
     Dosage: 500 MG, UNK
  27. LUNESTA [Concomitant]
     Active Substance: ESZOPICLONE
     Indication: SLEEP DISORDER
     Dosage: 3 MG, 1X/DAY
  28. FUROSEMIDE. [Concomitant]
     Active Substance: FUROSEMIDE
     Indication: BLOOD PRESSURE DECREASED
  29. PROVENTIL HFA [SALBUTAMOL] [Concomitant]
     Indication: COUGH
     Dosage: 90 UG, AS NEEDED (2 PUFFS EVERY 4HRS AS NEEDED )
  30. LYRICA [Suspect]
     Active Substance: PREGABALIN
     Indication: NEURALGIA
  31. MS CONTIN [Concomitant]
     Active Substance: MORPHINE SULFATE
     Indication: PAIN
     Dosage: 15 MG, 1X/DAY
  32. CARVEDILOL. [Concomitant]
     Active Substance: CARVEDILOL
     Indication: DIZZINESS
  33. HYDROCODONE [Concomitant]
     Active Substance: HYDROCODONE
     Indication: SOMNOLENCE
     Dosage: 325 MG, UNK (325 MG, 1/1 2 HRS FOR 14 DAYS)
  34. OXYCODONE [Concomitant]
     Active Substance: OXYCODONE
     Indication: PAIN
     Dosage: 325 MG, UNK (325 MG, 1 /6-8 HRS )
  35. MS CONTIN [Concomitant]
     Active Substance: MORPHINE SULFATE
     Dosage: 15 MG, 2X/DAY
     Dates: start: 2005
  36. TRAMADOL. [Concomitant]
     Active Substance: TRAMADOL
     Indication: PAIN
     Dosage: 50 MG, UNK
  37. DIGOXIN. [Concomitant]
     Active Substance: DIGOXIN
     Dosage: 125 MG, 1X/DAY
  38. FUROSEMIDE. [Concomitant]
     Active Substance: FUROSEMIDE
     Indication: DIZZINESS
     Dosage: 20 MG, AS NEEDED (1 TABLET/DAY AS NEEDED)
  39. XYZAL [Concomitant]
     Active Substance: LEVOCETIRIZINE DIHYDROCHLORIDE
     Indication: HYPERSENSITIVITY
     Dosage: 5 MG, AS NEEDED (5MG, 1 TABLET PER DAY AS NEEDED )
  40. MORPHINE SULFATE. [Concomitant]
     Active Substance: MORPHINE SULFATE
     Dosage: UNK
     Dates: start: 2005
  41. LYRICA [Suspect]
     Active Substance: PREGABALIN
     Indication: BACK PAIN
     Dosage: 225 MG, 2X/DAY
     Route: 048
     Dates: start: 2000
  42. DICLOFEN [DICLOFENAC SODIUM] [Concomitant]
     Indication: ARTHRITIS
     Dosage: 75 MG, 2X/DAY
     Dates: start: 2017
  43. MORPHINE [Concomitant]
     Active Substance: MORPHINE
     Indication: PAIN
     Dosage: 15 MG, 1X/DAY
     Route: 048
     Dates: start: 2014
  44. CLOPIDOGREL [CLOPIDOGREL HYDROCHLORIDE] [Concomitant]
     Indication: ANTICOAGULANT THERAPY
     Dosage: 75 MG, 1X/DAY
  45. MYRBETRIQ [Concomitant]
     Active Substance: MIRABEGRON
     Indication: HYPERTONIC BLADDER
     Dosage: 25 MG, UNK
  46. PROAIR HFA [Concomitant]
     Active Substance: ALBUTEROL SULFATE
     Dosage: 90 UG, UNK
  47. ROZEREM [Concomitant]
     Active Substance: RAMELTEON
     Indication: SLEEP DISORDER
     Dosage: 8 MG, 1X/DAY
  48. COLACE [Concomitant]
     Active Substance: DOCUSATE SODIUM
     Dosage: 100 MG, AS NEEDED (1 SOFTGEL/DAY (STOOL SOFTENER) AT BEDTIME ONLY WHEN NEEDED)
  49. PROVENTIL HFA [SALBUTAMOL] [Concomitant]
     Indication: WHEEZING
  50. PROVENTIL HFA [SALBUTAMOL] [Concomitant]
     Indication: DYSPNOEA

REACTIONS (16)
  - Hypotension [Unknown]
  - Head injury [Unknown]
  - Osteoporosis [Unknown]
  - Wrong technique in product usage process [Unknown]
  - Aphasia [Not Recovered/Not Resolved]
  - Dizziness [Unknown]
  - Chronic obstructive pulmonary disease [Unknown]
  - Loss of consciousness [Unknown]
  - Sleep apnoea syndrome [Unknown]
  - Cognitive disorder [Recovering/Resolving]
  - Tooth fracture [Unknown]
  - Cerebrovascular accident [Not Recovered/Not Resolved]
  - Delirium [Unknown]
  - Dysgraphia [Recovering/Resolving]
  - Fall [Unknown]
  - Contusion [Unknown]

NARRATIVE: CASE EVENT DATE: 20150310
